FAERS Safety Report 18250756 (Version 1)
Quarter: 2020Q3

REPORT INFORMATION
  Report Type: Spontaneous
  Country: ES (occurrence: ES)
  Receive Date: 20200910
  Receipt Date: 20200910
  Transmission Date: 20201103
  Serious: Yes (Other)
  Sender: FDA-Public Use
  Company Number: ES-SUN PHARMACEUTICAL INDUSTRIES LTD-2020R1-259980

PATIENT
  Age: 60 Year
  Sex: Female

DRUGS (6)
  1. PREDNISONE. [Suspect]
     Active Substance: PREDNISONE
     Dosage: 10 MILLIGRAM, DAILY
     Route: 065
  2. PREDNISONE. [Suspect]
     Active Substance: PREDNISONE
     Dosage: 80 MILLIGRAM, DAILY
     Route: 065
  3. AZATHIOPRINE. [Suspect]
     Active Substance: AZATHIOPRINE
     Indication: URTICARIAL VASCULITIS
     Dosage: 150 MILLIGRAM, DAILY
     Route: 065
  4. LEVOCETIRIZINE [Concomitant]
     Active Substance: LEVOCETIRIZINE
     Indication: ANTIALLERGIC THERAPY
     Route: 065
  5. PREDNISONE. [Suspect]
     Active Substance: PREDNISONE
     Indication: URTICARIAL VASCULITIS
     Dosage: 60 MILLIGRAM, DAILY
     Route: 065
  6. DAPSONE. [Concomitant]
     Active Substance: DAPSONE
     Indication: URTICARIAL VASCULITIS
     Dosage: 100 MILLIGRAM, DAILY
     Route: 065

REACTIONS (5)
  - Intraocular pressure increased [Unknown]
  - Diabetes mellitus [Recovered/Resolved]
  - Cushingoid [Recovered/Resolved]
  - Myalgia [Unknown]
  - Hyperglycaemic hyperosmolar nonketotic syndrome [Unknown]
